FAERS Safety Report 5163704-1 (Version None)
Quarter: 2006Q4

REPORT INFORMATION
  Report Type: 
  Country: None (occurrence: None)
  Receive Date: 20061204
  Receipt Date: 20020618
  Transmission Date: 20070319
  Serious: Yes (Hospitalization)
  Sender: FDA-Public Use
  Company Number: FR-GLAXOSMITHKLINE-B0271532B

PATIENT
  Sex: Female
  Weight: 2.5 kg

DRUGS (5)
  1. RETROVIR [Suspect]
     Indication: ANTIVIRAL PROPHYLAXIS
     Route: 048
     Dates: start: 19990331
  2. RETROVIR [Suspect]
     Indication: HIV INFECTION
     Route: 048
     Dates: start: 19990201
  3. RETROVIR [Suspect]
     Route: 042
     Dates: start: 19990331, end: 19990331
  4. SUBUTEX [Concomitant]
     Dosage: 2MG PER DAY
     Route: 060
  5. VITAMINS [Concomitant]
     Route: 048

REACTIONS (8)
  - ANAEMIA [None]
  - CAESAREAN SECTION [None]
  - DRUG EXPOSURE DURING PREGNANCY [None]
  - HYPERLACTACIDAEMIA [None]
  - MATERNAL CONDITION AFFECTING FOETUS [None]
  - NEONATAL DISORDER [None]
  - NEUTROPENIA [None]
  - THROMBOCYTHAEMIA [None]
